FAERS Safety Report 5304458-5 (Version None)
Quarter: 2007Q2

REPORT INFORMATION
  Report Type: 
  Country: None (occurrence: None)
  Receive Date: 20070423
  Receipt Date: 20070417
  Transmission Date: 20071010
  Serious: Yes (Hospitalization)
  Sender: FDA-Public Use
  Company Number: US-GENENTECH-240069

PATIENT
  Age: 64 Year
  Sex: Male
  Weight: 86 kg

DRUGS (3)
  1. BEVACIZUMAB [Suspect]
     Indication: ADENOCARCINOMA PANCREAS
     Dosage: 10 MG/KG, DAYS 1+15
     Route: 042
     Dates: start: 20060815
  2. ERLOTINIB [Suspect]
     Indication: ADENOCARCINOMA PANCREAS
     Dosage: 150 MG, UNK
     Route: 048
     Dates: start: 20060815
  3. GEMCITABINE HCL [Suspect]
     Indication: ADENOCARCINOMA PANCREAS
     Dosage: 1000 MG/M2, DAYS1,8,15
     Route: 042
     Dates: start: 20060815

REACTIONS (1)
  - CONFUSIONAL STATE [None]
